FAERS Safety Report 25853028 (Version 1)
Quarter: 2025Q3

REPORT INFORMATION
  Report Type: Spontaneous
  Country: US (occurrence: None)
  Receive Date: 20250925
  Receipt Date: 20250925
  Transmission Date: 20251020
  Serious: Yes (Hospitalization)
  Sender: FDA-CTU
  Company Number: None

PATIENT
  Sex: Male
  Weight: 111.6 kg

DRUGS (2)
  1. WINREVAIR [Suspect]
     Active Substance: SOTATERCEPT-CSRK
     Indication: Pulmonary arterial hypertension
     Route: 058
     Dates: start: 20250916
  2. REMODULIN [Suspect]
     Active Substance: TREPROSTINIL

REACTIONS (7)
  - Nausea [None]
  - Diarrhoea [None]
  - Headache [None]
  - Abdominal discomfort [None]
  - Oedema [None]
  - Weight increased [None]
  - Device use issue [None]
